FAERS Safety Report 6203316-1 (Version None)
Quarter: 2009Q2

REPORT INFORMATION
  Report Type: 
  Country: None (occurrence: None)
  Receive Date: 20090527
  Receipt Date: 20090519
  Transmission Date: 20091009
  Serious: Yes (Other)
  Sender: FDA-Public Use
  Company Number: PHHY2009PL17080

PATIENT
  Age: 68 Year
  Sex: Female

DRUGS (5)
  1. CARBAMAZEPINE [Suspect]
     Indication: TRIGEMINAL NEURALGIA
     Dosage: 800 MG, DAILY
  2. CARBAMAZEPINE [Interacting]
     Dosage: 600 MG, DAILY
  3. SPIRONOLACTONE [Interacting]
     Indication: PRIMARY HYPERALDOSTERONISM
     Dosage: 100 MG, DAILY
  4. SPIRONOLACTONE [Interacting]
     Dosage: 200 MG, DAILY
  5. SPIRONOLACTONE [Interacting]
     Dosage: 300 MG, DAILY

REACTIONS (5)
  - BLOOD POTASSIUM DECREASED [None]
  - BLOOD PRESSURE INCREASED [None]
  - DRUG INTERACTION [None]
  - TACHYCARDIA [None]
  - URINE POTASSIUM INCREASED [None]
